FAERS Safety Report 6525774-5 (Version None)
Quarter: 2010Q1

REPORT INFORMATION
  Report Type: 
  Country: None (occurrence: None)
  Receive Date: 20100104
  Receipt Date: 20090918
  Transmission Date: 20100710
  Serious: Yes (Death, Other)
  Sender: FDA-Public Use
  Company Number: US-BAYER-200933752NA

PATIENT
  Age: 69 Year
  Sex: Male
  Weight: 109 kg

DRUGS (13)
  1. MAGNEVIST [Suspect]
     Indication: ANGIOGRAM
     Dosage: AS USED: 25 ML
     Dates: start: 20060719, end: 20060719
  2. MAGNEVIST [Suspect]
     Dosage: AS USED: 25 ML
     Dates: start: 20060719, end: 20060719
  3. MAGNEVIST [Suspect]
     Dates: start: 20070312, end: 20070312
  4. MAGNEVIST [Suspect]
     Dosage: TOTAL DAILY DOSE: 20 ML
     Dates: start: 20070325, end: 20070325
  5. INFED [Concomitant]
  6. EPOGEN [Concomitant]
  7. NEPHROCAPS [Concomitant]
  8. VENOFER [Concomitant]
  9. ZEMPLAR [Concomitant]
  10. TOPROL-XL [Concomitant]
  11. NEURONTIN [Concomitant]
  12. ASPIRIN [Concomitant]
  13. COUMADIN [Concomitant]

REACTIONS (12)
  - ERYTHEMA [None]
  - MOBILITY DECREASED [None]
  - MUSCULOSKELETAL STIFFNESS [None]
  - NEPHROGENIC SYSTEMIC FIBROSIS [None]
  - OEDEMA PERIPHERAL [None]
  - PAIN [None]
  - RASH PAPULAR [None]
  - SKIN DISCOLOURATION [None]
  - SKIN DISORDER [None]
  - SKIN INDURATION [None]
  - SKIN PLAQUE [None]
  - SKIN ULCER [None]
